FAERS Safety Report 4975465-7 (Version None)
Quarter: 2006Q2

REPORT INFORMATION
  Report Type: 
  Country: None (occurrence: None)
  Receive Date: 20060410
  Receipt Date: 20060327
  Transmission Date: 20061013
  Serious: Yes (Life-Threatening, Hospitalization, Other)
  Sender: FDA-Public Use
  Company Number: DE-2006-003585

PATIENT
  Age: 63 Year
  Sex: Female
  Weight: 65 kg

DRUGS (3)
  1. ULTRAVIST 300 [Suspect]
     Indication: COMPUTERISED TOMOGRAM ABDOMEN
     Dosage: 100 ML, 1 DOSE, INTRAVENOUS
     Route: 042
     Dates: start: 20060214, end: 20060214
  2. L-THYROXINE (LEVOTHYROXINE) [Concomitant]
  3. METOPROLOL SUCCINATE [Concomitant]

REACTIONS (2)
  - ANAPHYLACTIC SHOCK [None]
  - ANGIONEUROTIC OEDEMA [None]
